FAERS Safety Report 8183923-X (Version None)
Quarter: 2012Q1

REPORT INFORMATION
  Report Type: 
  Country: None (occurrence: None)
  Receive Date: 20120305
  Receipt Date: 20120229
  Transmission Date: 20120608
  Serious: Yes (Death)
  Sender: FDA-Public Use
  Company Number: GB-ROCHE-GNE319934

PATIENT
  Sex: Female

DRUGS (5)
  1. ASACOL [Concomitant]
  2. ATORVASTATIN [Concomitant]
  3. ASPIRIN [Concomitant]
  4. CO-AMILOFRUSE [Concomitant]
     Route: 050
  5. LUCENTIS [Suspect]
     Indication: PRODUCT USED FOR UNKNOWN INDICATION
     Route: 050
     Dates: start: 20110325

REACTIONS (1)
  - CEREBRAL HAEMORRHAGE [None]
